FAERS Safety Report 10032327 (Version 1)
Quarter: 2014Q1

REPORT INFORMATION
  Report Type: Spontaneous
  Country: GB (occurrence: GB)
  Receive Date: 20140324
  Receipt Date: 20140324
  Transmission Date: 20141002
  Serious: Yes (Death)
  Sender: FDA-Public Use
  Company Number: GB-PFIZER INC-2014081504

PATIENT
  Age: 61 Year
  Sex: Male

DRUGS (1)
  1. AXITINIB [Suspect]
     Indication: NEOPLASM MALIGNANT
     Dosage: 5 MG, UNK

REACTIONS (3)
  - Death [Fatal]
  - Disease progression [Unknown]
  - Neoplasm malignant [Unknown]
